FAERS Safety Report 6414684-X (Version None)
Quarter: 2009Q4

REPORT INFORMATION
  Report Type: 
  Country: None (occurrence: None)
  Receive Date: 20091026
  Receipt Date: 20091019
  Transmission Date: 20100525
  Serious: Yes (Other)
  Sender: FDA-Public Use
  Company Number: AU-AMGEN-KDL345355

PATIENT
  Age: 99 Year
  Sex: Female

DRUGS (2)
  1. ARANESP [Suspect]
     Indication: RENAL TRANSPLANT
  2. MYCOPHENOLATE MOFETIL [Suspect]

REACTIONS (2)
  - BLOOD PRODUCT TRANSFUSION DEPENDENT [None]
  - RETICULOCYTE COUNT INCREASED [None]
